FAERS Safety Report 17653800 (Version 2)
Quarter: 2020Q2

REPORT INFORMATION
  Report Type: Report from Study
  Country: None (occurrence: US)
  Receive Date: 20200409
  Receipt Date: 20200511
  Transmission Date: 20200713
  Serious: Yes (Other)
  Sender: FDA-Public Use
  Company Number: US-ABBVIE-20K-163-3356645-00

PATIENT
  Age: 74 Year
  Sex: Female

DRUGS (1)
  1. VENCLEXTA [Suspect]
     Active Substance: VENETOCLAX
     Indication: CHRONIC LYMPHOCYTIC LEUKAEMIA
     Route: 048
     Dates: start: 20200307

REACTIONS (11)
  - Immunoglobulins decreased [Unknown]
  - Abdominal pain lower [Unknown]
  - Malaise [Recovered/Resolved]
  - Fall [Recovered/Resolved]
  - Asthenia [Recovered/Resolved]
  - Blood sodium decreased [Recovered/Resolved]
  - Lymph node pain [Not Recovered/Not Resolved]
  - Hypotension [Recovered/Resolved]
  - Neck pain [Unknown]
  - Hyponatraemia [Unknown]
  - Loss of consciousness [Recovered/Resolved]

NARRATIVE: CASE EVENT DATE: 2020
